FAERS Safety Report 26052406 (Version 3)
Quarter: 2025Q4

REPORT INFORMATION
  Report Type: Spontaneous
  Country: US (occurrence: US)
  Receive Date: 20251117
  Receipt Date: 20251211
  Transmission Date: 20260119
  Serious: Yes (Hospitalization, Other)
  Sender: SANOFI AVENTIS
  Company Number: US-SA-2025SA340216

PATIENT
  Age: 2 Month
  Sex: Male

DRUGS (9)
  1. LUMIZYME [Suspect]
     Active Substance: ALGLUCOSIDASE ALFA
     Indication: Glycogen storage disease type II
     Dosage: 400 MG, QW
     Route: 042
     Dates: start: 202502, end: 2025
  2. LUMIZYME [Suspect]
     Active Substance: ALGLUCOSIDASE ALFA
     Dosage: 400 MG, QW
     Route: 042
     Dates: start: 202511
  3. HEPARIN [Concomitant]
     Active Substance: HEPARIN SODIUM
  4. CHILDRENS ALLERGY NOS [Concomitant]
     Active Substance: UNSPECIFIED INGREDIENT
  5. DIPHENHYDRAMINE [Concomitant]
     Active Substance: DIPHENHYDRAMINE
  6. CHILDREN^S PAIN RELIEF [Concomitant]
     Active Substance: ACETAMINOPHEN
  7. SODIUM CHLORIDE [Concomitant]
     Active Substance: SODIUM CHLORIDE
  8. SOD CHLOR POS STERILE F [Concomitant]
  9. STERILE WATER [Concomitant]
     Active Substance: WATER

REACTIONS (3)
  - Multiple organ dysfunction syndrome [Unknown]
  - Pneumonia [Unknown]
  - Inappropriate schedule of product administration [Unknown]

NARRATIVE: CASE EVENT DATE: 20250101
